FAERS Safety Report 9700216 (Version 1)
Quarter: 2013Q4

REPORT INFORMATION
  Report Type: Spontaneous
  Country: CA (occurrence: CA)
  Receive Date: 20131121
  Receipt Date: 20131121
  Transmission Date: 20140711
  Serious: Yes (Death)
  Sender: FDA-Public Use
  Company Number: CA-ROCHE-1303890

PATIENT
  Age: 48 Year
  Sex: Male

DRUGS (4)
  1. CLONAZEPAM [Suspect]
     Indication: PRODUCT USED FOR UNKNOWN INDICATION
     Route: 065
  2. ALPRAZOLAM [Suspect]
     Indication: PRODUCT USED FOR UNKNOWN INDICATION
     Route: 065
  3. OXYCONTIN [Suspect]
     Indication: PRODUCT USED FOR UNKNOWN INDICATION
     Route: 065
  4. AMITRIPTYLINE [Suspect]
     Indication: PRODUCT USED FOR UNKNOWN INDICATION
     Route: 065

REACTIONS (11)
  - Brain injury [Fatal]
  - Cardiac arrest [Fatal]
  - Drug dependence [Fatal]
  - Dyskinesia [Fatal]
  - Heart rate increased [Fatal]
  - Loss of consciousness [Fatal]
  - Miosis [Fatal]
  - Overdose [Fatal]
  - Oxygen saturation decreased [Fatal]
  - Substance abuse [Fatal]
  - Thinking abnormal [Fatal]
